FAERS Safety Report 24097422 (Version 1)
Quarter: 2024Q3

REPORT INFORMATION
  Report Type: Spontaneous
  Country: US (occurrence: None)
  Receive Date: 20240715
  Receipt Date: 20240715
  Transmission Date: 20241017
  Serious: Yes (Other)
  Sender: Public
  Company Number: None

PATIENT
  Age: 73 Year
  Sex: Female
  Weight: 72.9 kg

DRUGS (18)
  1. NITROFURANTOIN [Suspect]
     Active Substance: NITROFURANTOIN
     Indication: Urinary tract infection
     Dosage: 10 CAPSULES TWICE A DAY ORAL
     Route: 048
  2. OLMESARTAN [Concomitant]
     Active Substance: OLMESARTAN
  3. CLOPIDOGREL [Concomitant]
     Active Substance: CLOPIDOGREL BISULFATE
  4. EZETIMIBE [Concomitant]
     Active Substance: EZETIMIBE
  5. ISOSORBIDE [Concomitant]
     Active Substance: ISOSORBIDE
  6. JANUMET [Concomitant]
     Active Substance: METFORMIN HYDROCHLORIDE\SITAGLIPTIN PHOSPHATE
  7. METOPROLOL [Concomitant]
     Active Substance: METOPROLOL
  8. RANEXA [Concomitant]
     Active Substance: RANOLAZINE
  9. REPAGLINIDE [Concomitant]
     Active Substance: REPAGLINIDE
  10. ROSUVASTATIN CALCIUM [Concomitant]
     Active Substance: ROSUVASTATIN CALCIUM
  11. NITROFURANTOIN [Concomitant]
     Active Substance: NITROFURANTOIN
  12. Bayer Aspiring [Concomitant]
  13. VITAMIN B12 [Concomitant]
     Active Substance: CYANOCOBALAMIN
  14. BIOTIN [Concomitant]
     Active Substance: BIOTIN
  15. VITAMIN D3 [Concomitant]
     Active Substance: CHOLECALCIFEROL
  16. COENZYME Q10 [Concomitant]
     Active Substance: DIETARY SUPPLEMENT\UBIDECARENONE
  17. Ester C [Concomitant]
  18. Perservision [Concomitant]

REACTIONS (2)
  - Diarrhoea [None]
  - Adverse drug reaction [None]

NARRATIVE: CASE EVENT DATE: 20240714
